FAERS Safety Report 7326890-0 (Version None)
Quarter: 2011Q1

REPORT INFORMATION
  Report Type: 
  Country: None (occurrence: None)
  Receive Date: 20110302
  Receipt Date: 20091201
  Transmission Date: 20110831
  Serious: Yes (Other)
  Sender: FDA-Public Use
  Company Number: US-PFIZER INC-2009263203

PATIENT

DRUGS (3)
  1. DEPAKOTE [Suspect]
     Indication: CONVULSION
     Dosage: UNK
  2. KEPPRA [Suspect]
     Indication: CONVULSION
     Dosage: UNK
  3. DILANTIN-125 [Suspect]
     Indication: CONVULSION
     Dosage: UNK

REACTIONS (1)
  - CONVULSION [None]
